FAERS Safety Report 6403983-3 (Version None)
Quarter: 2009Q4

REPORT INFORMATION
  Report Type: 
  Country: None (occurrence: None)
  Receive Date: 20091016
  Receipt Date: 20090807
  Transmission Date: 20100525
  Serious: No
  Sender: FDA-Public Use
  Company Number: US-ALEXION-A200900640

PATIENT
  Sex: Female

DRUGS (22)
  1. SOLIRIS [Suspect]
     Indication: PAROXYSMAL NOCTURNAL HAEMOGLOBINURIA
     Dosage: 600 MG, QW
     Route: 042
     Dates: start: 20090803
  2. LOVENOX [Suspect]
     Dosage: 10 MG, QD
  3. COUMADIN [Suspect]
     Dosage: 3 MG, QD
  4. COUMADIN [Suspect]
     Dosage: 4 MG, QD
     Dates: start: 20090701, end: 20090701
  5. COUMADIN [Suspect]
     Dosage: 5 MG, QD
     Dates: start: 20090701, end: 20090701
  6. COUMADIN [Suspect]
     Dosage: 7.5 MG, QD
     Dates: start: 20090701
  7. BENADRYL [Concomitant]
     Indication: PREMEDICATION
     Dosage: UNK
     Route: 042
     Dates: start: 20090803
  8. DECADRON [Concomitant]
     Indication: PREMEDICATION
     Dosage: UNK
     Route: 042
     Dates: start: 20090803
  9. ANZEMET [Concomitant]
     Indication: PREMEDICATION
     Dosage: UNK
     Route: 042
     Dates: start: 20090803
  10. TYLENOL (CAPLET) [Concomitant]
     Indication: PREMEDICATION
     Dosage: UNK
     Route: 048
     Dates: start: 20090803
  11. ALBUTEROL [Concomitant]
     Indication: DYSPNOEA
     Dosage: 2 PUFFS, QID, PRN
  12. HYDROCHLOROTHIAZIDE [Concomitant]
     Indication: CARDIAC DISORDER
     Dosage: 12.5 MG, UNK
     Route: 048
  13. OXYCONTIN [Concomitant]
     Indication: BACK PAIN
     Dosage: 40 MG, TID
     Route: 048
  14. LORAZEPAM [Concomitant]
     Indication: SLEEP DISORDER
     Dosage: 0.5 MG, QD
     Route: 048
  15. PRISTIQ [Concomitant]
     Indication: DEPRESSION
     Dosage: UNK
     Route: 048
  16. NEURONTIN [Concomitant]
     Indication: NEURALGIA
     Dosage: 30 MG, TID
     Route: 048
     Dates: start: 20090701
  17. NITROGLYCERIN [Concomitant]
     Indication: CHEST PAIN
     Dosage: 0.5 MG, PRN
     Route: 060
  18. VALTREX [Concomitant]
     Indication: HERPES ZOSTER
     Dosage: UNK
     Route: 048
     Dates: start: 20090701
  19. PREDNISONE [Concomitant]
     Indication: HERPES ZOSTER
     Dosage: 20 MG, QD
     Route: 048
     Dates: start: 20090701
  20. SURFAK [Concomitant]
     Indication: CONSTIPATION PROPHYLAXIS
     Dosage: 240 MG, QD, PRN
     Route: 048
     Dates: start: 20090701
  21. PRILOSEC [Concomitant]
     Dosage: 20 MG, QD
     Route: 048
  22. FOLIC ACID [Concomitant]
     Dosage: 400 UG, QD
     Route: 048

REACTIONS (1)
  - COAGULATION TEST ABNORMAL [None]
